FAERS Safety Report 18106488 (Version 1)
Quarter: 2020Q3

REPORT INFORMATION
  Report Type: Spontaneous
  Country: None (occurrence: GB)
  Receive Date: 20200803
  Receipt Date: 20200803
  Transmission Date: 20201103
  Serious: Yes (Death, Life-Threatening, Other)
  Sender: FDA-Public Use
  Company Number: GB-TAMARANG, S.A.-2088069

PATIENT
  Age: 17 Year
  Sex: Female

DRUGS (1)
  1. ROCURONIUM BROMIDE. [Suspect]
     Active Substance: ROCURONIUM BROMIDE

REACTIONS (10)
  - Bronchospasm [None]
  - Lung perforation [None]
  - Cardiac arrest [None]
  - Anaphylactic reaction [None]
  - Death [None]
  - Apallic syndrome [None]
  - Hypoventilation [None]
  - Brain injury [None]
  - Maternal exposure during delivery [None]
  - Uterine haemorrhage [None]
